FAERS Safety Report 8201769 (Version 3)
Quarter: 2012Q4

REPORT INFORMATION
  Report Type: Report from Study
  Country: NO (occurrence: NO)
  Receive Date: 20111018
  Receipt Date: 20121025
  Transmission Date: 20130627
  Serious: Yes (Death, Other)
  Sender: FDA-Public Use
  Company Number: NO-ACCORD-010959

PATIENT
  Age: 49 Year
  Sex: Male

DRUGS (7)
  1. ETOPOSIDE [Suspect]
     Indication: HODGKIN^S LYMPHOMA
     Dosage: 200 mg/m2 (mg/meter sq.), day 1 to 3
     Route: 042
  2. DOXORUBICIN [Suspect]
     Indication: HODGKIN^S LYMPHOMA
     Dosage: 35 mg/m2 on day 1
     Route: 042
  3. VINCRISTINE [Suspect]
     Indication: HODGKIN^S LYMPHOMA
     Dosage: 1.4 mg/m2 on day 8
     Route: 042
  4. CYCLOPHOSPHAMIDE [Suspect]
     Indication: HODGKIN^S LYMPHOMA
     Dosage: 1250 mg/m2 on day 1
     Route: 042
  5. PROCARBAZINE [Suspect]
     Indication: HODGKIN^S LYMPHOMA
     Dosage: 100 mg/m2 day 1 to 7
     Route: 048
  6. PREDNISOLONE [Suspect]
     Indication: HODGKIN^S LYMPHOMA
     Dosage: 40 mg/m2 on day 1 to 14
     Route: 048
  7. BLEOMYCIN [Suspect]
     Indication: HODGKIN^S LYMPHOMA
     Dosage: 10000 IU on day 8
     Route: 042

REACTIONS (7)
  - Septic shock [Fatal]
  - Infection [Fatal]
  - Bone marrow failure [Unknown]
  - Pneumocystis jiroveci pneumonia [Recovered/Resolved]
  - Lung infiltration [Unknown]
  - Pyrexia [Unknown]
  - Off label use [Unknown]
